FAERS Safety Report 16791977 (Version 1)
Quarter: 2019Q3

REPORT INFORMATION
  Report Type: Spontaneous
  Country: US (occurrence: US)
  Receive Date: 20190910
  Receipt Date: 20190910
  Transmission Date: 20191005
  Serious: Yes (Death, Hospitalization)
  Sender: FDA-Public Use
  Company Number: US-TEVA-2019-US-1105366

PATIENT
  Age: 14 Year
  Sex: Female

DRUGS (3)
  1. IBUPROFEN. [Concomitant]
     Active Substance: IBUPROFEN
     Dosage: UNKNOWN QUANTITY OF 200 MG
     Route: 048
  2. HYDROXYCHLOROQUINE [Suspect]
     Active Substance: HYDROXYCHLOROQUINE
     Indication: INTENTIONAL OVERDOSE
     Dosage: APPROXIMATELY 60 TABLETS OF 200 MG
     Route: 048
  3. NAPROXEN. [Concomitant]
     Active Substance: NAPROXEN
     Dosage: SEVERAL AMOUNT OF 750MG NAPROXEN
     Route: 048

REACTIONS (9)
  - Intentional overdose [Fatal]
  - Pupil fixed [Unknown]
  - Toxicity to various agents [Fatal]
  - Metabolic acidosis [Fatal]
  - Cardiac arrest [Fatal]
  - Renal failure [Fatal]
  - Pulmonary oedema [Fatal]
  - Blood pressure abnormal [Fatal]
  - Unresponsive to stimuli [Unknown]
